FAERS Safety Report 8492067-9 (Version None)
Quarter: 2012Q3

REPORT INFORMATION
  Report Type: 
  Country: None (occurrence: None)
  Receive Date: 20120706
  Receipt Date: 20120702
  Transmission Date: 20120928
  Serious: Yes (Hospitalization, Other)
  Sender: FDA-Public Use
  Company Number: US-PFIZER INC-2012158535

PATIENT
  Sex: Female
  Weight: 68.027 kg

DRUGS (6)
  1. VANCOMYCIN HCL [Interacting]
     Indication: LOCALISED INFECTION
     Dosage: 750 MG, 2X/DAY
     Dates: start: 20120101
  2. AMITRIPTYLINE [Concomitant]
     Indication: SLEEP DISORDER
     Dosage: 100 MG DAILY
  3. PRISTIQ [Suspect]
     Indication: DEPRESSION
     Dosage: 50 MG DAILY
     Dates: start: 20120101, end: 20120101
  4. ROCEPHIN [Interacting]
     Indication: LOCALISED INFECTION
     Dosage: 2 MG, 2X/DAY
     Dates: start: 20120101
  5. TRAMADOL HYDROCHLORIDE [Concomitant]
     Dosage: 1 OR 2 TABLETS OF 50MG EVERY 6 HOURS AS NEEDED
  6. PROPRANOLOL [Concomitant]
     Indication: RESTLESS LEGS SYNDROME
     Dosage: 1 MG, DAILY

REACTIONS (9)
  - SUICIDAL IDEATION [None]
  - AMNESIA [None]
  - ARTHROPATHY [None]
  - IRRITABILITY [None]
  - DRUG INTERACTION [None]
  - PSYCHOTIC DISORDER [None]
  - STAPHYLOCOCCAL INFECTION [None]
  - PROTEUS INFECTION [None]
  - ANXIETY [None]
